FAERS Safety Report 10026990 (Version 1)
Quarter: 2014Q1

REPORT INFORMATION
  Report Type: Report from Study
  Country: JP (occurrence: JP)
  Receive Date: 20140321
  Receipt Date: 20140321
  Transmission Date: 20141002
  Serious: Yes (Other)
  Sender: FDA-Public Use
  Company Number: JP-MYLANLABS-2014S1005389

PATIENT
  Age: 79 Year
  Sex: Male

DRUGS (1)
  1. PREDNISOLONE [Suspect]
     Dosage: 20 MG/DAY
     Route: 065

REACTIONS (3)
  - Nocardiosis [Recovered/Resolved]
  - Lung infection [Recovered/Resolved]
  - Muscle abscess [Recovered/Resolved]
